APPROVED DRUG PRODUCT: FUROSEMIDE
Active Ingredient: FUROSEMIDE
Strength: 80MG
Dosage Form/Route: TABLET;ORAL
Application: A091258 | Product #003
Applicant: SUN PHARMACEUTICAL INDUSTRIES INC
Approved: Apr 1, 2014 | RLD: No | RS: No | Type: DISCN